FAERS Safety Report 8151917-6 (Version None)
Quarter: 2012Q1

REPORT INFORMATION
  Report Type: 
  Country: None (occurrence: None)
  Receive Date: 20120221
  Receipt Date: 20120214
  Transmission Date: 20120608
  Serious: No
  Sender: FDA-Public Use
  Company Number: US-PFIZER INC-2012015802

PATIENT
  Sex: Female

DRUGS (8)
  1. CARDURA [Concomitant]
     Dosage: UNK
  2. LANTUS [Concomitant]
     Dosage: UNK
  3. ZOFRAN [Concomitant]
  4. TIKOSYN [Suspect]
     Indication: BOWEL MOVEMENT IRREGULARITY
     Dosage: 500 UG, 2X/DAY
     Route: 048
     Dates: start: 20110927
  5. CYMBALTA [Concomitant]
  6. LASIX [Concomitant]
     Dosage: UNK
  7. SIMVASTATIN [Concomitant]
     Dosage: 80 MG, 4X/DAY
  8. METOPROLOL [Concomitant]
     Dosage: 50 MG, 4X/DAY

REACTIONS (2)
  - MEDICATION RESIDUE [None]
  - DYSPEPSIA [None]
